APPROVED DRUG PRODUCT: ZURAGARD
Active Ingredient: ISOPROPYL ALCOHOL
Strength: 70%
Dosage Form/Route: SOLUTION;TOPICAL
Application: N210872 | Product #001
Applicant: ZUREX PHARMA
Approved: Apr 26, 2019 | RLD: Yes | RS: Yes | Type: OTC

PATENTS:
Patent 9629368 | Expires: May 23, 2028
Patent 9844654 | Expires: Apr 24, 2036
Patent 10688291 | Expires: Dec 20, 2034
Patent 8389583 | Expires: Aug 9, 2029
Patent 8703828 | Expires: May 23, 2028